FAERS Safety Report 7884835-9 (Version None)
Quarter: 2011Q4

REPORT INFORMATION
  Report Type: 
  Country: None (occurrence: None)
  Receive Date: 20111102
  Receipt Date: 20111019
  Transmission Date: 20120403
  Serious: Yes (Hospitalization)
  Sender: FDA-Public Use
  Company Number: PHHY2011US92880

PATIENT
  Sex: Male
  Weight: 90.7 kg

DRUGS (1)
  1. MYFORTIC [Suspect]
     Indication: RENAL TRANSPLANT
     Dosage: 1440 MG
     Route: 048
     Dates: start: 20100312

REACTIONS (5)
  - BENIGN PROSTATIC HYPERPLASIA [None]
  - BLOOD CREATININE INCREASED [None]
  - HYDRONEPHROSIS [None]
  - HYPERKALAEMIA [None]
  - URINARY TRACT OBSTRUCTION [None]
